FAERS Safety Report 6370483-9 (Version None)
Quarter: 2009Q3

REPORT INFORMATION
  Report Type: 
  Country: None (occurrence: None)
  Receive Date: 20090921
  Receipt Date: 20090921
  Transmission Date: 20100115
  Serious: Yes (Life-Threatening, Other)
  Sender: FDA-Public Use
  Company Number: None

PATIENT
  Age: 65 Year
  Sex: Male
  Weight: 81.4 kg

DRUGS (2)
  1. VYTORIN [Suspect]
     Dosage: VYTORIN ONE A DAY ORAL
     Route: 048
  2. ZETIA [Suspect]
     Dosage: ZETIA 5MG ONCE A DAY ORAL
     Route: 048

REACTIONS (1)
  - NIGHTMARE [None]
